FAERS Safety Report 7235688-3 (Version None)
Quarter: 2011Q1

REPORT INFORMATION
  Report Type: 
  Country: None (occurrence: None)
  Receive Date: 20110110
  Receipt Date: 20110106
  Transmission Date: 20110831
  Serious: Yes (Hospitalization)
  Sender: FDA-Public Use
  Company Number: 2011000087

PATIENT
  Age: 24 Year
  Sex: Female
  Weight: 106 kg

DRUGS (1)
  1. PROVIGIL [Suspect]
     Indication: HYPERSOMNIA
     Dosage: (200 MG), ORAL
     Route: 048
     Dates: start: 20101201

REACTIONS (2)
  - VAGINAL INFLAMMATION [None]
  - STEVENS-JOHNSON SYNDROME [None]
